FAERS Safety Report 22626191 (Version 2)
Quarter: 2023Q2

REPORT INFORMATION
  Report Type: Spontaneous
  Country: FR (occurrence: FR)
  Receive Date: 20230621
  Receipt Date: 20230628
  Transmission Date: 20230722
  Serious: Yes (Hospitalization)
  Sender: FDA-Public Use
  Company Number: FR-MYLANLABS-2023M1064258

PATIENT
  Sex: Male

DRUGS (1)
  1. LOPERAMIDE [Suspect]
     Active Substance: LOPERAMIDE
     Indication: Product used for unknown indication
     Dosage: 2 MILLIGRAM, ONCE
     Route: 065
     Dates: start: 20230518, end: 20230518

REACTIONS (7)
  - Tachycardia [Recovered/Resolved]
  - Hypotension [Unknown]
  - Pyrexia [Unknown]
  - Hyperhidrosis [Unknown]
  - Fall [Recovered/Resolved]
  - Asthenia [Unknown]
  - Fatigue [Unknown]

NARRATIVE: CASE EVENT DATE: 20230519
